FAERS Safety Report 14737939 (Version 1)
Quarter: 2018Q2

REPORT INFORMATION
  Report Type: Spontaneous
  Country: FR (occurrence: FR)
  Receive Date: 20180409
  Receipt Date: 20180409
  Transmission Date: 20180711
  Serious: Yes (Hospitalization, Other)
  Sender: FDA-Public Use
  Company Number: FR-GILEAD-2018-0331291

PATIENT
  Age: 68 Year
  Sex: Female
  Weight: 50 kg

DRUGS (7)
  1. OCTAGAM IMMUNE GLOBULIN (HUMAN) [Concomitant]
     Active Substance: HUMAN IMMUNOGLOBULIN G
     Route: 042
  2. ZELITREX [Concomitant]
     Active Substance: VALACYCLOVIR HYDROCHLORIDE
     Dosage: UNK
     Dates: start: 20171124
  3. ZYDELIG [Suspect]
     Active Substance: IDELALISIB
     Indication: LYMPHOMA
     Dosage: 100 MG, QD
     Route: 048
     Dates: start: 20171123, end: 20171222
  4. GAZYVARO [Suspect]
     Active Substance: OBINUTUZUMAB
     Indication: LYMPHOMA
     Dosage: 1000 MG, UNK
     Route: 042
  5. LEVOTHYROX [Concomitant]
     Active Substance: LEVOTHYROXINE
  6. TIRABRUTINIB [Suspect]
     Active Substance: TIRABRUTINIB
     Indication: LYMPHOMA
     Dosage: 80 MG, QD
     Route: 065
     Dates: start: 20171122, end: 20171222
  7. BACTRIM [Concomitant]
     Active Substance: SULFAMETHOXAZOLE\TRIMETHOPRIM
     Dosage: UNK
     Dates: start: 20171124

REACTIONS (5)
  - Dyspraxia [Recovered/Resolved]
  - Psychomotor skills impaired [Recovering/Resolving]
  - Vision blurred [Recovering/Resolving]
  - Disturbance in attention [Recovered/Resolved]
  - Coordination abnormal [Recovering/Resolving]

NARRATIVE: CASE EVENT DATE: 201712
